FAERS Safety Report 16375120 (Version 1)
Quarter: 2019Q2

REPORT INFORMATION
  Report Type: Other
  Country: CA (occurrence: CA)
  Receive Date: 20190531
  Receipt Date: 20190531
  Transmission Date: 20190711
  Serious: Yes (Hospitalization, Other)
  Sender: FDA-Public Use
  Company Number: CA-APOTEX-2019AP015171

PATIENT
  Age: 84 Year
  Sex: Female

DRUGS (25)
  1. BREO ELLIPTA [Suspect]
     Active Substance: FLUTICASONE FUROATE\VILANTEROL TRIFENATATE
     Indication: ASTHMA
     Dosage: UNK
     Route: 065
  2. SYMBICORT [Suspect]
     Active Substance: BUDESONIDE\FORMOTEROL FUMARATE DIHYDRATE
     Indication: PRODUCT USED FOR UNKNOWN INDICATION
     Dosage: 2 DF, BID
     Route: 065
  3. UMECLIDINIUM BROMIDE [Suspect]
     Active Substance: UMECLIDINIUM BROMIDE
     Indication: ASTHMA
     Dosage: 1 DF, QD, INHALATION
     Route: 050
  4. CALCIUM CARBONATE W/ETIDRONATE DISODIUM [Concomitant]
     Active Substance: CALCIUM CARBONATE\ETIDRONATE DISODIUM
     Indication: PRODUCT USED FOR UNKNOWN INDICATION
     Dosage: 1 DF, QD
     Route: 065
  5. IPRATROPIUM BROMIDE AND SALBUTAMOL SULFATE [Concomitant]
     Active Substance: ALBUTEROL SULFATE\IPRATROPIUM BROMIDE
     Indication: PRODUCT USED FOR UNKNOWN INDICATION
     Dosage: UNK
     Route: 065
  6. PREDNISONE. [Suspect]
     Active Substance: PREDNISONE
     Indication: PRODUCT USED FOR UNKNOWN INDICATION
     Dosage: UNK
     Route: 065
  7. ALVESCO [Suspect]
     Active Substance: CICLESONIDE
     Indication: PRODUCT USED FOR UNKNOWN INDICATION
     Dosage: 200 ?G, QD, INHALATION
     Route: 050
  8. MEPOLIZUMAB [Suspect]
     Active Substance: MEPOLIZUMAB
     Indication: PRODUCT USED FOR UNKNOWN INDICATION
  9. FUROSEMIDE. [Concomitant]
     Active Substance: FUROSEMIDE
     Indication: PRODUCT USED FOR UNKNOWN INDICATION
     Dosage: 40 MG, QD
     Route: 065
  10. TEMAZEPAM. [Concomitant]
     Active Substance: TEMAZEPAM
     Indication: PRODUCT USED FOR UNKNOWN INDICATION
     Dosage: 60 MG, QD
     Route: 065
  11. VALSARTAN. [Concomitant]
     Active Substance: VALSARTAN
     Indication: PRODUCT USED FOR UNKNOWN INDICATION
     Dosage: 80 MG, QD
     Route: 065
  12. ATROVENT [Suspect]
     Active Substance: IPRATROPIUM BROMIDE
     Indication: PRODUCT USED FOR UNKNOWN INDICATION
     Dosage: UNK
     Route: 065
  13. METOPROLOL. [Concomitant]
     Active Substance: METOPROLOL
     Indication: PRODUCT USED FOR UNKNOWN INDICATION
     Dosage: 50 MG, BID
     Route: 065
  14. NYSTATIN. [Concomitant]
     Active Substance: NYSTATIN
     Indication: PRODUCT USED FOR UNKNOWN INDICATION
     Dosage: 5 ML, BID
     Route: 048
  15. PLANTAGO OVATA [Concomitant]
     Active Substance: HERBALS\PLANTAGO OVATA LEAF
     Indication: PRODUCT USED FOR UNKNOWN INDICATION
     Dosage: 1 DF, QD
     Route: 065
  16. SALBUTAMOL [Suspect]
     Active Substance: ALBUTEROL
     Indication: PRODUCT USED FOR UNKNOWN INDICATION
     Dosage: 2 DF, QID
     Route: 065
  17. APIXABAN [Concomitant]
     Active Substance: APIXABAN
     Indication: PRODUCT USED FOR UNKNOWN INDICATION
     Dosage: 5 MG, QD
     Route: 065
  18. CALCIUM [Concomitant]
     Active Substance: CALCIUM
     Indication: PRODUCT USED FOR UNKNOWN INDICATION
     Dosage: UNK, QD
     Route: 065
  19. ETIDRONATE [Concomitant]
     Active Substance: ETIDRONATE DISODIUM
     Indication: PRODUCT USED FOR UNKNOWN INDICATION
     Dosage: 1 DF, QD
     Route: 065
  20. MEPOLIZUMAB [Suspect]
     Active Substance: MEPOLIZUMAB
     Indication: ASTHMA
     Dosage: UNK
     Route: 065
  21. MEPOLIZUMAB [Suspect]
     Active Substance: MEPOLIZUMAB
     Indication: PRODUCT USED FOR UNKNOWN INDICATION
  22. PULMICORT TURBUHALER [Suspect]
     Active Substance: BUDESONIDE
     Indication: PRODUCT USED FOR UNKNOWN INDICATION
     Dosage: UNK, BID
     Route: 065
  23. VENTOLIN [Suspect]
     Active Substance: ALBUTEROL SULFATE
     Indication: ASTHMA
     Dosage: UNK, QID
     Route: 065
  24. MACROGOL 3350 [Concomitant]
     Active Substance: POLYETHYLENE GLYCOL 3350
     Indication: PRODUCT USED FOR UNKNOWN INDICATION
     Dosage: 17 G, UNK
     Route: 065
  25. MEPOLIZUMAB [Suspect]
     Active Substance: MEPOLIZUMAB
     Indication: ASTHMA
     Dosage: UNK
     Route: 065

REACTIONS (25)
  - Upper-airway cough syndrome [Not Recovered/Not Resolved]
  - Arthritis [Not Recovered/Not Resolved]
  - Asthma [Not Recovered/Not Resolved]
  - Dyspnoea [Not Recovered/Not Resolved]
  - Joint swelling [Not Recovered/Not Resolved]
  - Kyphosis [Not Recovered/Not Resolved]
  - Wheezing [Not Recovered/Not Resolved]
  - Hiatus hernia [Not Recovered/Not Resolved]
  - Cough [Not Recovered/Not Resolved]
  - Dyspnoea exertional [Not Recovered/Not Resolved]
  - Osteoarthritis [Not Recovered/Not Resolved]
  - Osteoporosis [Not Recovered/Not Resolved]
  - Cardiac failure congestive [Not Recovered/Not Resolved]
  - Insomnia [Not Recovered/Not Resolved]
  - Obstructive airways disorder [Not Recovered/Not Resolved]
  - Oedema peripheral [Not Recovered/Not Resolved]
  - Pneumonia [Not Recovered/Not Resolved]
  - Pulmonary oedema [Not Recovered/Not Resolved]
  - Blood test abnormal [Not Recovered/Not Resolved]
  - Pain in extremity [Not Recovered/Not Resolved]
  - Productive cough [Not Recovered/Not Resolved]
  - Rectal prolapse [Not Recovered/Not Resolved]
  - Atrial fibrillation [Not Recovered/Not Resolved]
  - Bundle branch block left [Not Recovered/Not Resolved]
  - Venous pressure jugular increased [Not Recovered/Not Resolved]
